FAERS Safety Report 7709959-8 (Version None)
Quarter: 2011Q3

REPORT INFORMATION
  Report Type: 
  Country: None (occurrence: None)
  Receive Date: 20110825
  Receipt Date: 20110819
  Transmission Date: 20111222
  Serious: Yes (Other)
  Sender: FDA-Public Use
  Company Number: IN-PFIZER INC-2011196180

PATIENT
  Age: 24 Year
  Sex: Female

DRUGS (3)
  1. NIFEDIPINE [Suspect]
     Dosage: 20 MG, 2X/DAY
  2. LABETALOL HYDROCHLORIDE [Suspect]
     Dosage: 200 MG, 2X/DAY
  3. METHYLDOPA [Suspect]
     Dosage: 500 MG, 3X/DAY

REACTIONS (12)
  - PREMATURE DELIVERY [None]
  - PERIPHERAL VASCULAR DISORDER [None]
  - PHAEOCHROMOCYTOMA [None]
  - PRE-ECLAMPSIA [None]
  - LABOUR INDUCTION [None]
  - WITHDRAWAL HYPERTENSION [None]
  - PREGNANCY [None]
  - POST PROCEDURAL COMPLICATION [None]
  - HYPERTENSION [None]
  - MATERNAL EXPOSURE DURING PREGNANCY [None]
  - CENTRAL NERVOUS SYSTEM LESION [None]
  - CEREBRAL INFARCTION [None]
